FAERS Safety Report 5423144-4 (Version None)
Quarter: 2007Q3

REPORT INFORMATION
  Report Type: 
  Country: None (occurrence: None)
  Receive Date: 20070821
  Receipt Date: 20070808
  Transmission Date: 20080115
  Serious: Yes (Hospitalization)
  Sender: FDA-Public Use
  Company Number: B0432403A

PATIENT
  Age: 58 Year
  Sex: Female

DRUGS (3)
  1. ZYBAN [Suspect]
     Indication: SMOKING CESSATION THERAPY
     Dosage: 150 MG PER DAY ORAL
     Route: 048
     Dates: start: 20040716, end: 20040720
  2. HYPERICUM (FORMULATION UNKNOWN) (HYPERICUM) [Suspect]
     Dosage: 300 MG PER DAY
  3. TRIDESTRA [Concomitant]

REACTIONS (5)
  - COMMUNICATION DISORDER [None]
  - DYSTONIA [None]
  - EYE ROLLING [None]
  - HYPOTHYROIDISM [None]
  - MUSCLE SPASMS [None]
